FAERS Safety Report 20009001 (Version 2)
Quarter: 2021Q4

REPORT INFORMATION
  Report Type: Spontaneous
  Country: GB (occurrence: GB)
  Receive Date: 20211028
  Receipt Date: 20211111
  Transmission Date: 20220303
  Serious: Yes (Hospitalization, Other)
  Sender: FDA-Public Use
  Company Number: GB-MLMSERVICE-20211011-3157386-1

PATIENT
  Age: 55 Year
  Sex: Female

DRUGS (2)
  1. EPIRUBICIN HYDROCHLORIDE [Suspect]
     Active Substance: EPIRUBICIN HYDROCHLORIDE
     Indication: Metastases to lymph nodes
     Dosage: 25 ML
  2. EPIRUBICIN HYDROCHLORIDE [Suspect]
     Active Substance: EPIRUBICIN HYDROCHLORIDE
     Indication: Invasive ductal breast carcinoma

REACTIONS (4)
  - Muscle oedema [Recovering/Resolving]
  - Skin ulcer [Recovering/Resolving]
  - Breast necrosis [Recovering/Resolving]
  - Administration site extravasation [Recovering/Resolving]
